FAERS Safety Report 22231665 (Version 2)
Quarter: 2023Q2

REPORT INFORMATION
  Report Type: Report from Study
  Country: CA (occurrence: CA)
  Receive Date: 20230420
  Receipt Date: 20230425
  Transmission Date: 20230721
  Serious: Yes (Hospitalization)
  Sender: FDA-Public Use
  Company Number: CA-JNJFOC-20230224284

PATIENT
  Age: 17 Year
  Sex: Female
  Weight: 58 kg

DRUGS (1)
  1. REMICADE [Suspect]
     Active Substance: INFLIXIMAB
     Indication: Crohn^s disease
     Dosage: 08-FEB-2023 APPOINTMENT REBOOKED TO 21-MAR-2023.
     Route: 042

REACTIONS (4)
  - Asthma [Unknown]
  - Psoriasis [Unknown]
  - Viral infection [Unknown]
  - Product dose omission issue [Unknown]

NARRATIVE: CASE EVENT DATE: 20230208
